FAERS Safety Report 4822132-6 (Version None)
Quarter: 2005Q4

REPORT INFORMATION
  Report Type: 
  Country: None (occurrence: None)
  Receive Date: 20051103
  Receipt Date: 20051021
  Transmission Date: 20060501
  Serious: No
  Sender: FDA-Public Use
  Company Number: US_0509121618

PATIENT
  Sex: Female

DRUGS (2)
  1. CYMBALTA [Suspect]
     Indication: FIBROMYALGIA
     Dosage: 60 MG
     Dates: start: 20050726, end: 20050817
  2. LEVOTHYROXINE [Concomitant]

REACTIONS (4)
  - HYPERSENSITIVITY [None]
  - PHARYNGOLARYNGEAL PAIN [None]
  - RASH [None]
  - TOXIC SKIN ERUPTION [None]
